FAERS Safety Report 15679788 (Version 15)
Quarter: 2020Q1

REPORT INFORMATION
  Report Type: Report from Study
  Country: CO (occurrence: CO)
  Receive Date: 20181203
  Receipt Date: 20200305
  Transmission Date: 20200409
  Serious: Yes (Death, Hospitalization, Other)
  Sender: FDA-Public Use
  Company Number: CO-ASTELLAS-2018US046892

PATIENT
  Age: 62 Year
  Sex: Female
  Weight: 64 kg

DRUGS (11)
  1. MYCOPHENOLATE [Concomitant]
     Active Substance: MYCOPHENOLIC ACID
     Indication: RENAL TRANSPLANT
     Dosage: 750 MG (500 MG + 250 MG), EVERY 12 HOURS
     Route: 048
     Dates: start: 20170324
  2. ERYTHROPOIETIN [Concomitant]
     Active Substance: ERYTHROPOIETIN
     Indication: ANAEMIA
     Dosage: UNK UNK, UNKNOWN FREQ.
     Route: 065
  3. TACROLIMUS. [Suspect]
     Active Substance: TACROLIMUS
     Indication: RENAL TRANSPLANT
     Route: 048
     Dates: start: 20170324, end: 202002
  4. AMLODIPINE [Concomitant]
     Active Substance: AMLODIPINE BESYLATE
     Indication: BLOOD PRESSURE MEASUREMENT
     Route: 048
     Dates: start: 20170324
  5. ERYTHROPOIETIN [Concomitant]
     Active Substance: ERYTHROPOIETIN
     Indication: BLOOD ALBUMIN ABNORMAL
  6. ENALAPRIL [Concomitant]
     Active Substance: ENALAPRIL
     Indication: HYPERTENSION
     Dosage: 20 EVERY 12 HOURS
     Route: 048
     Dates: start: 20170324
  7. AMLODIPINE [Concomitant]
     Active Substance: AMLODIPINE BESYLATE
     Route: 048
     Dates: start: 201905
  8. LEVOTHYROXINE. [Concomitant]
     Active Substance: LEVOTHYROXINE
     Indication: THYROID DISORDER
     Dosage: 20 MG, ONCE DAILY (SINCE 10 YEARS AGO)
     Route: 048
  9. LEVOTHYROXINE. [Concomitant]
     Active Substance: LEVOTHYROXINE
     Dosage: 75 MG, ONCE DAILY (SINCE 10 YEARS AGO)
     Route: 048
  10. MYCOPHENOLATE [Concomitant]
     Active Substance: MYCOPHENOLIC ACID
     Route: 048
  11. MYCOPHENOLATE [Concomitant]
     Active Substance: MYCOPHENOLIC ACID
     Dosage: 2 DF (2X180 MG), ONCE DAILY
     Route: 048
     Dates: start: 20170324

REACTIONS (39)
  - Infection parasitic [Recovered/Resolved]
  - Proteinuria [Not Recovered/Not Resolved]
  - Diarrhoea [Unknown]
  - Gastritis [Recovered/Resolved]
  - Asthenia [Unknown]
  - Secondary immunodeficiency [Recovered/Resolved]
  - Blood sodium decreased [Unknown]
  - Fatigue [Recovering/Resolving]
  - Secondary immunodeficiency [Unknown]
  - Diarrhoea [Not Recovered/Not Resolved]
  - Peripheral swelling [Not Recovered/Not Resolved]
  - Diarrhoea [Not Recovered/Not Resolved]
  - Ear pain [Recovered/Resolved]
  - Malaise [Not Recovered/Not Resolved]
  - Feeding disorder [Unknown]
  - Abdominal pain upper [Not Recovered/Not Resolved]
  - Blood potassium decreased [Recovering/Resolving]
  - Neck pain [Recovering/Resolving]
  - Abdominal pain upper [Unknown]
  - Blood creatinine increased [Recovering/Resolving]
  - Abdominal pain upper [Not Recovered/Not Resolved]
  - Blood creatinine increased [Not Recovered/Not Resolved]
  - Gait disturbance [Recovering/Resolving]
  - Diarrhoea [Not Recovered/Not Resolved]
  - Immunosuppressant drug level decreased [Not Recovered/Not Resolved]
  - Rash [Recovered/Resolved]
  - Muscle spasms [Not Recovered/Not Resolved]
  - Asthenia [Recovering/Resolving]
  - Kidney transplant rejection [Recovering/Resolving]
  - Swelling face [Not Recovered/Not Resolved]
  - Malnutrition [Unknown]
  - Pneumonia [Fatal]
  - Renal disorder [Fatal]
  - Blood magnesium decreased [Recovered/Resolved]
  - Back pain [Recovering/Resolving]
  - Pain in extremity [Not Recovered/Not Resolved]
  - Urine abnormality [Recovered/Resolved]
  - Oedema peripheral [Unknown]
  - Oropharyngeal plaque [Unknown]

NARRATIVE: CASE EVENT DATE: 2018
